FAERS Safety Report 4399376-3 (Version None)
Quarter: 2004Q3

REPORT INFORMATION
  Report Type: 
  Country: None (occurrence: None)
  Receive Date: 20040716
  Receipt Date: 20030829
  Transmission Date: 20050211
  Serious: Yes (Hospitalization)
  Sender: FDA-Public Use
  Company Number: PHBS2003JP09355

PATIENT
  Age: 73 Year
  Sex: Male
  Weight: 36 kg

DRUGS (3)
  1. GLEEVEC [Suspect]
     Indication: GASTROINTESTINAL STROMAL TUMOUR
     Dosage: 200 MG/D
     Route: 048
     Dates: start: 20031031
  2. GLEEVEC [Suspect]
     Dosage: 400 MG, QD
     Route: 048
     Dates: start: 20030731, end: 20030822
  3. GLEEVEC [Suspect]
     Dosage: 400 MG/D
     Route: 048
     Dates: start: 20030922, end: 20030930

REACTIONS (9)
  - ABDOMINAL PAIN [None]
  - CONTUSION [None]
  - EPISTAXIS [None]
  - FALL [None]
  - HAEMORRHAGE SUBCUTANEOUS [None]
  - NAUSEA [None]
  - RASH [None]
  - TUMOUR HAEMORRHAGE [None]
  - VOMITING [None]
